FAERS Safety Report 12440434 (Version 1)
Quarter: 2016Q2

REPORT INFORMATION
  Report Type: Spontaneous
  Country: GB (occurrence: GB)
  Receive Date: 20160606
  Receipt Date: 20160606
  Transmission Date: 20160815
  Serious: Yes (Other)
  Sender: FDA-Public Use
  Company Number: PHHY2016GB072981

PATIENT

DRUGS (2)
  1. LORAZEPAM. [Suspect]
     Active Substance: LORAZEPAM
     Indication: ANXIETY DISORDER
     Dosage: 4 MG, BID, AT 09.23 AND 09.50
     Route: 030
  2. LORAZEPAM. [Suspect]
     Active Substance: LORAZEPAM
     Indication: AGITATION
     Dosage: 4 MG, UNK
     Route: 042

REACTIONS (3)
  - Coma scale abnormal [Not Recovered/Not Resolved]
  - Depressed level of consciousness [Not Recovered/Not Resolved]
  - Drug prescribing error [Unknown]
